FAERS Safety Report 18163272 (Version 2)
Quarter: 2020Q3

REPORT INFORMATION
  Report Type: Spontaneous
  Country: US (occurrence: US)
  Receive Date: 20200818
  Receipt Date: 20200909
  Transmission Date: 20201103
  Serious: Yes (Other)
  Sender: FDA-Public Use
  Company Number: US-AKORN PHARMACEUTICALS-2020AKN01053

PATIENT
  Sex: Male
  Weight: 65 kg

DRUGS (2)
  1. MYORISAN [Suspect]
     Active Substance: ISOTRETINOIN
     Indication: ACNE CYSTIC
     Dosage: 30 MG, 2X/DAY
     Route: 048
     Dates: start: 20200203, end: 20200713
  2. MULTIVITAMIN [Concomitant]
     Active Substance: VITAMINS

REACTIONS (2)
  - Anger [Unknown]
  - Depression [Unknown]

NARRATIVE: CASE EVENT DATE: 2020
